FAERS Safety Report 25097647 (Version 1)
Quarter: 2025Q1

REPORT INFORMATION
  Report Type: Spontaneous
  Country: US (occurrence: US)
  Receive Date: 20250320
  Receipt Date: 20250320
  Transmission Date: 20250408
  Serious: No
  Sender: AUROBINDO
  Company Number: US-AUROBINDO-AUR-APL-2024-031612

PATIENT
  Age: 80 Year
  Sex: Female
  Weight: 56.699 kg

DRUGS (4)
  1. GABAPENTIN [Suspect]
     Active Substance: GABAPENTIN
     Indication: Knee arthroplasty
     Route: 065
     Dates: end: 20240620
  2. MELOXICAM [Concomitant]
     Active Substance: MELOXICAM
     Indication: Knee arthroplasty
     Route: 065
  3. ASPIRIN [Concomitant]
     Active Substance: ASPIRIN
     Indication: Knee arthroplasty
     Route: 065
  4. VITAMIN C [Concomitant]
     Active Substance: ASCORBIC ACID
     Indication: Knee arthroplasty
     Route: 065

REACTIONS (2)
  - Thirst [Unknown]
  - Salivary hyposecretion [Unknown]
